FAERS Safety Report 8434770-2 (Version None)
Quarter: 2012Q2

REPORT INFORMATION
  Report Type: 
  Country: None (occurrence: None)
  Receive Date: 20120614
  Receipt Date: 20120604
  Transmission Date: 20120825
  Serious: Yes (Death, Hospitalization)
  Sender: FDA-Public Use
  Company Number: US-JNJFOC-20120207150

PATIENT
  Sex: Male
  Weight: 99.79 kg

DRUGS (23)
  1. BENICAR [Concomitant]
     Dosage: 1X
     Route: 065
  2. FLOVENT [Concomitant]
     Dosage: 1X
     Route: 065
  3. NIACIN [Concomitant]
     Dosage: 2X
     Route: 065
  4. POTASSIUM [Concomitant]
     Dosage: 1X  DOSE: 10 MEQ ER
     Route: 065
  5. FOLIC ACID [Concomitant]
     Dosage: 1X
     Route: 065
  6. COENZYME Q10 [Concomitant]
     Dosage: 1X
     Route: 065
  7. PREDNISONE TAB [Suspect]
     Route: 065
     Dates: start: 20110701
  8. ASPIRIN [Concomitant]
     Dosage: 1X
     Route: 065
  9. KLONOPIN [Concomitant]
     Dosage: 2X
     Route: 065
  10. PRILOSEC [Concomitant]
     Dosage: 1X
     Route: 065
  11. PROAIR HFA [Concomitant]
     Dosage: 1X
     Route: 065
  12. ALL OTHER THERAPEUTICS [Concomitant]
     Dosage: 1X   DOSE: 5000 (UNITS UNSPECIFIED)
     Route: 065
  13. FUROSEMIDE [Concomitant]
     Dosage: 1X
     Route: 065
  14. VITAMIN B-12 [Concomitant]
     Dosage: 1X
     Route: 065
  15. CENTRUM CARDIO [Concomitant]
     Dosage: 1X
     Route: 065
  16. PAXIL [Concomitant]
     Dosage: 1X
     Route: 065
  17. PREDNISONE TAB [Concomitant]
     Dosage: 2X
     Route: 065
  18. OMEGA 3-6-9 [Concomitant]
     Dosage: 1X
     Route: 065
  19. REMICADE [Suspect]
     Indication: COLITIS ULCERATIVE
     Route: 042
     Dates: start: 20101216, end: 20120127
  20. REMICADE [Suspect]
     Route: 042
     Dates: start: 20101101, end: 20120105
  21. PREDNISONE TAB [Suspect]
     Indication: DIARRHOEA
     Route: 065
     Dates: start: 20111123
  22. BYSTOLIC [Concomitant]
     Dosage: 1X
     Route: 065
  23. LIPITOR [Concomitant]
     Dosage: 1X
     Route: 065

REACTIONS (5)
  - COLITIS ULCERATIVE [None]
  - WEIGHT INCREASED [None]
  - CHRONIC OBSTRUCTIVE PULMONARY DISEASE [None]
  - MYOCARDIAL INFARCTION [None]
  - DIARRHOEA [None]
